FAERS Safety Report 5535024-4 (Version None)
Quarter: 2007Q4

REPORT INFORMATION
  Report Type: 
  Country: None (occurrence: None)
  Receive Date: 20071203
  Receipt Date: 20071121
  Transmission Date: 20080405
  Serious: Yes (Hospitalization, Other)
  Sender: FDA-Public Use
  Company Number: 07-002237

PATIENT
  Age: 88 Year
  Sex: Female

DRUGS (1)
  1. MANDELAMINE (METHENAMINE MANDELATE) TABLET, 1G [Suspect]
     Indication: PROPHYLAXIS URINARY TRACT INFECTION
     Dosage: 1G, QD, ORAL
     Route: 048
     Dates: start: 20071024, end: 20071101

REACTIONS (6)
  - ALANINE AMINOTRANSFERASE INCREASED [None]
  - ASPARTATE AMINOTRANSFERASE INCREASED [None]
  - CONDITION AGGRAVATED [None]
  - DRUG INEFFECTIVE [None]
  - LIVER INJURY [None]
  - PLATELET COUNT DECREASED [None]
